FAERS Safety Report 4348195-2 (Version None)
Quarter: 2004Q2

REPORT INFORMATION
  Report Type: 
  Country: None (occurrence: None)
  Receive Date: 20040422
  Receipt Date: 20040412
  Transmission Date: 20050107
  Serious: Yes (Hospitalization, Other)
  Sender: FDA-Public Use
  Company Number: 2003188569US

PATIENT
  Age: 29 Year
  Sex: Female

DRUGS (5)
  1. DOSTINEX [Suspect]
     Indication: PITUITARY TUMOUR BENIGN
     Dosage: 0.5 MG WEEKLY
     Dates: start: 19980513, end: 19980601
  2. DOSTINEX [Suspect]
     Indication: PITUITARY TUMOUR BENIGN
     Dosage: 0.5 MG WEEKLY
     Dates: start: 19990301, end: 19990101
  3. DOSTINEX [Suspect]
     Indication: PITUITARY TUMOUR BENIGN
     Dosage: 0.5 MG WEEKLY
     Dates: end: 20000101
  4. XANAX [Concomitant]
  5. PREDNISONE [Concomitant]

REACTIONS (10)
  - ADENOMYOSIS [None]
  - CERVICAL DYSPLASIA [None]
  - CERVICITIS [None]
  - ENDOMETRIOSIS [None]
  - FALLOPIAN TUBE CYST [None]
  - METRORRHAGIA [None]
  - OVARIAN CYST [None]
  - PELVIC PAIN [None]
  - PELVIC PERITONEAL ADHESIONS [None]
  - UTERINE ENLARGEMENT [None]
